FAERS Safety Report 10763334 (Version 5)
Quarter: 2015Q3

REPORT INFORMATION
  Report Type: Spontaneous
  Country: JP (occurrence: JP)
  Receive Date: 20150204
  Receipt Date: 20150717
  Transmission Date: 20151125
  Serious: Yes (Life-Threatening, Hospitalization, Disabling, Other)
  Sender: FDA-Public Use
  Company Number: JP-GLAXOSMITHKLINE-JP2015JPN012676

PATIENT
  Age: 74 Year
  Sex: Male
  Weight: 57 kg

DRUGS (15)
  1. DOGMATYL [Suspect]
     Active Substance: SULPIRIDE
     Dosage: 50 MG, QD
     Route: 048
     Dates: start: 20150109, end: 20150128
  2. RISPERIDONE. [Suspect]
     Active Substance: RISPERIDONE
     Dosage: UNK
     Route: 065
     Dates: start: 20150129, end: 20150209
  3. SULFAMETHOXAZOLE-TRIMETHOPRIM [Suspect]
     Active Substance: SULFAMETHOXAZOLE\TRIMETHOPRIM
     Dosage: 1 DF, QD
     Route: 048
     Dates: start: 20150207, end: 20150209
  4. GENINAX [Suspect]
     Active Substance: GARENOXACIN MESYLATE
     Dosage: UNK
     Route: 048
     Dates: start: 20150123, end: 20150128
  5. NORVASC [Suspect]
     Active Substance: AMLODIPINE BESYLATE
     Dosage: UNK
     Route: 048
     Dates: start: 20141128
  6. FLUNITRAZEPAM [Suspect]
     Active Substance: FLUNITRAZEPAM
     Dosage: UNK
     Route: 065
     Dates: start: 20150129, end: 20150209
  7. TAMIFLU [Suspect]
     Active Substance: OSELTAMIVIR PHOSPHATE
     Dosage: UNK
     Route: 048
     Dates: start: 20150120, end: 20150125
  8. VOTRIENT [Suspect]
     Active Substance: PAZOPANIB HYDROCHLORIDE
     Indication: LEIOMYOSARCOMA
     Dosage: 600 MG, QD
     Route: 048
     Dates: start: 20141117, end: 20141127
  9. ZOSYN [Suspect]
     Active Substance: PIPERACILLIN SODIUM\TAZOBACTAM SODIUM
     Dosage: UNK
     Route: 065
     Dates: start: 20150129, end: 20150206
  10. VOTRIENT [Suspect]
     Active Substance: PAZOPANIB HYDROCHLORIDE
     Dosage: 200 MG, QD
     Route: 048
     Dates: start: 20141226, end: 20150119
  11. NEXIUM [Suspect]
     Active Substance: ESOMEPRAZOLE MAGNESIUM
     Dosage: 10 MG, QD
     Route: 048
     Dates: start: 20141216, end: 20150128
  12. VOTRIENT [Suspect]
     Active Substance: PAZOPANIB HYDROCHLORIDE
     Dosage: 400 MG, QD
     Route: 048
     Dates: start: 20141128, end: 20141212
  13. FAMOTIDINE. [Suspect]
     Active Substance: FAMOTIDINE
     Dosage: UNK
     Route: 065
     Dates: start: 20150201, end: 20150209
  14. CARDENALIN [Suspect]
     Active Substance: DOXAZOSIN MESYLATE
     Dosage: UNK
     Route: 048
     Dates: start: 20141206
  15. ISONIAZID. [Suspect]
     Active Substance: ISONIAZID
     Dosage: 200 MG, 1D
     Route: 048
     Dates: start: 20150207, end: 20150209

REACTIONS (15)
  - Renal disorder [Recovering/Resolving]
  - Hypoxia [Unknown]
  - Pyrexia [Unknown]
  - Cytomegalovirus infection [Unknown]
  - Dyspnoea [Unknown]
  - Lung disorder [Unknown]
  - Bronchiectasis [Unknown]
  - Cough [Unknown]
  - Decreased appetite [Unknown]
  - Interstitial lung disease [Not Recovered/Not Resolved]
  - Hepatic function abnormal [Recovering/Resolving]
  - Oxygen saturation decreased [Unknown]
  - Chest X-ray abnormal [Unknown]
  - Computerised tomogram thorax abnormal [Unknown]
  - General physical health deterioration [Unknown]

NARRATIVE: CASE EVENT DATE: 20141128
